FAERS Safety Report 14539285 (Version 1)
Quarter: 2018Q1

REPORT INFORMATION
  Report Type: Spontaneous
  Country: US (occurrence: US)
  Receive Date: 20180215
  Receipt Date: 20180215
  Transmission Date: 20180509
  Serious: Yes (Hospitalization)
  Sender: FDA-Public Use
  Company Number: None

PATIENT
  Sex: Female

DRUGS (9)
  1. IMODIUM [Concomitant]
     Active Substance: LOPERAMIDE HYDROCHLORIDE
  2. FORTEO [Suspect]
     Active Substance: TERIPARATIDE
     Indication: OSTEOPOROSIS
     Route: 058
     Dates: start: 20180123
  3. MIRAPEX [Concomitant]
     Active Substance: PRAMIPEXOLE DIHYDROCHLORIDE
  4. IRON [Concomitant]
     Active Substance: IRON
  5. SINEMET [Concomitant]
     Active Substance: CARBIDOPA\LEVODOPA
  6. VITAMIN B12 [Concomitant]
     Active Substance: CYANOCOBALAMIN
  7. TRAMADOL. [Concomitant]
     Active Substance: TRAMADOL
  8. FLUDROCORT [Concomitant]
  9. MIDRODRINE [Concomitant]

REACTIONS (2)
  - Dehydration [None]
  - Gastroenteritis viral [None]
